FAERS Safety Report 5315558-8 (Version None)
Quarter: 2007Q2

REPORT INFORMATION
  Report Type: 
  Country: None (occurrence: None)
  Receive Date: 20070503
  Receipt Date: 20070430
  Transmission Date: 20071010
  Serious: Yes (Hospitalization)
  Sender: FDA-Public Use
  Company Number: 2007UW08835

PATIENT
  Age: 70 Year
  Sex: Female
  Weight: 60.3 kg

DRUGS (1)
  1. CRESTOR [Suspect]
     Indication: BLOOD CHOLESTEROL INCREASED
     Route: 048
     Dates: start: 20060501

REACTIONS (2)
  - CEREBROVASCULAR ACCIDENT [None]
  - MYALGIA [None]
